FAERS Safety Report 6491175-1 (Version None)
Quarter: 2009Q4

REPORT INFORMATION
  Report Type: 
  Country: None (occurrence: None)
  Receive Date: 20091208
  Receipt Date: 20091124
  Transmission Date: 20100525
  Serious: Yes (Hospitalization)
  Sender: FDA-Public Use
  Company Number: US-1170810

PATIENT
  Sex: Female

DRUGS (6)
  1. TRAVATAN Z [Suspect]
     Indication: GLAUCOMA
     Dosage: ONE DROP DAILY OU OPHTHALMIC
     Route: 047
     Dates: start: 20081216, end: 20090120
  2. ACTOS [Suspect]
     Indication: TYPE 2 DIABETES MELLITUS
     Dosage: 15 MG ORAL
     Route: 048
     Dates: start: 19990101
  3. ASPIRIN [Concomitant]
  4. PLAVIX [Concomitant]
  5. LIPITOR [Concomitant]
  6. LOPRESSOR (LOPRESSOR) [Concomitant]

REACTIONS (5)
  - BLOOD PRESSURE INCREASED [None]
  - CAROTID ARTERY DISEASE [None]
  - FRUSTRATION [None]
  - RENAL DISORDER [None]
  - TINNITUS [None]
